FAERS Safety Report 7266392-3 (Version None)
Quarter: 2011Q1

REPORT INFORMATION
  Report Type: 
  Country: None (occurrence: None)
  Receive Date: 20110131
  Receipt Date: 20110126
  Transmission Date: 20110831
  Serious: Yes (Other)
  Sender: FDA-Public Use
  Company Number: US-PFIZER INC-2011019045

PATIENT
  Sex: Male

DRUGS (3)
  1. LIPITOR [Suspect]
     Indication: CARDIAC DISORDER
     Dosage: 20 MG, DAILY
     Route: 048
  2. LIPITOR [Suspect]
     Dosage: 10 MG, 2X/DAY
  3. LIPITOR [Suspect]
     Dosage: 5 MG, 1X/DAY

REACTIONS (4)
  - MYALGIA [None]
  - DEAFNESS [None]
  - MUSCLE DISORDER [None]
  - FALL [None]
